FAERS Safety Report 7079980-4 (Version None)
Quarter: 2010Q4

REPORT INFORMATION
  Report Type: 
  Country: None (occurrence: None)
  Receive Date: 20101102
  Receipt Date: 20101025
  Transmission Date: 20110411
  Serious: Yes (Hospitalization, Other)
  Sender: FDA-Public Use
  Company Number: JP-ABBOTT-10P-087-0626289-00

PATIENT
  Sex: Male
  Weight: 44.5 kg

DRUGS (23)
  1. HUMIRA [Suspect]
     Indication: RHEUMATOID ARTHRITIS
     Route: 058
     Dates: start: 20100116, end: 20100116
  2. HUMIRA [Suspect]
     Route: 058
     Dates: start: 20100217, end: 20100526
  3. HUMIRA [Suspect]
     Route: 058
     Dates: start: 20100626
  4. PREDNISOLONE [Suspect]
     Indication: RHEUMATOID ARTHRITIS
     Route: 048
     Dates: start: 20090523, end: 20090605
  5. PREDNISOLONE [Suspect]
     Dates: start: 20090606, end: 20090627
  6. PREDNISOLONE [Suspect]
     Dates: start: 20090628, end: 20090703
  7. PREDNISOLONE [Suspect]
     Dates: start: 20090704, end: 20090731
  8. PREDNISOLONE [Suspect]
     Dates: start: 20090801, end: 20090828
  9. PREDNISOLONE [Suspect]
     Dates: start: 20090829, end: 20090919
  10. PREDNISOLONE [Suspect]
     Dates: start: 20090920, end: 20091002
  11. PREDNISOLONE [Suspect]
     Dosage: 15MG AND 12.5MG ALTERNATELY
     Dates: start: 20091003, end: 20091016
  12. PREDNISOLONE [Suspect]
     Dates: start: 20091017
  13. PREDNISOLONE [Suspect]
     Route: 048
     Dates: end: 20100303
  14. PREDNISOLONE [Suspect]
     Route: 048
     Dates: start: 20100304, end: 20100414
  15. PREDNISOLONE [Suspect]
     Route: 048
     Dates: start: 20100513, end: 20100526
  16. PREDNISOLONE [Suspect]
     Route: 048
     Dates: start: 20100415, end: 20100512
  17. PREDNISOLONE [Suspect]
     Route: 048
     Dates: start: 20100527
  18. TIOPRONIN [Concomitant]
     Indication: RHEUMATOID ARTHRITIS
     Route: 048
     Dates: start: 20090801
  19. BUCILLAMINE [Concomitant]
     Indication: RHEUMATOID ARTHRITIS
     Route: 048
     Dates: start: 20091030
  20. SODIUM RISEDRONATE HYDRATE [Concomitant]
     Indication: OSTEOPOROSIS
     Dosage: ON SUNDAY
     Route: 048
     Dates: start: 20091205
  21. ITRACONAZOLE [Concomitant]
     Indication: ORAL CANDIDIASIS
     Route: 048
     Dates: start: 20091205, end: 20100202
  22. KETOPROFEN [Concomitant]
     Indication: RHEUMATOID ARTHRITIS
     Dosage: 70 SHEETS 1 IN 1 D
     Route: 062
     Dates: start: 20090523
  23. ITRACONAZOLE [Concomitant]
     Indication: PRODUCT USED FOR UNKNOWN INDICATION
     Route: 048
     Dates: end: 20100217

REACTIONS (10)
  - ANAEMIA [None]
  - ARTHRALGIA [None]
  - BURSITIS [None]
  - DIZZINESS POSTURAL [None]
  - GAIT DISTURBANCE [None]
  - GASTRIC ULCER [None]
  - GASTRIC ULCER HAEMORRHAGE [None]
  - GASTROINTESTINAL HAEMORRHAGE [None]
  - MUSCULOSKELETAL PAIN [None]
  - RHEUMATOID ARTHRITIS [None]
